FAERS Safety Report 20785542 (Version 1)
Quarter: 2022Q2

REPORT INFORMATION
  Report Type: Spontaneous
  Country: US (occurrence: None)
  Receive Date: 20220504
  Receipt Date: 20220504
  Transmission Date: 20220721
  Serious: No
  Sender: FDA-Public Use
  Company Number: US-ROCHE-2889809

PATIENT
  Sex: Female

DRUGS (1)
  1. OCREVUS [Suspect]
     Active Substance: OCRELIZUMAB
     Indication: Primary progressive multiple sclerosis
     Dosage: ONGOING : YES
     Route: 042
     Dates: start: 201203

REACTIONS (4)
  - Weight decreased [Unknown]
  - Weight increased [Unknown]
  - Pharyngeal paraesthesia [Unknown]
  - Lacrimation increased [Unknown]
